FAERS Safety Report 17407914 (Version 1)
Quarter: 2020Q1

REPORT INFORMATION
  Report Type: Spontaneous
  Country: US (occurrence: US)
  Receive Date: 20200128
  Receipt Date: 20200128
  Transmission Date: 20200409
  Serious: Yes (Hospitalization)
  Sender: FDA-Public Use
  Company Number: None

PATIENT
  Age: 57 Year
  Sex: Male

DRUGS (23)
  1. MAGNESIUM [Concomitant]
     Active Substance: MAGNESIUM
  2. AMANTADINE. [Concomitant]
     Active Substance: AMANTADINE HYDROCHLORIDE
  3. CLIMEPIRIDE [Concomitant]
  4. VICTOZA [Concomitant]
     Active Substance: LIRAGLUTIDE
  5. TRESIBA [Concomitant]
     Active Substance: INSULIN DEGLUDEC
  6. VITAMIN E CAP [Concomitant]
  7. B COMPLEX CAP [Concomitant]
  8. ATORVASTATIN [Concomitant]
     Active Substance: ATORVASTATIN
  9. AMIODARONE [Concomitant]
     Active Substance: AMIODARONE
  10. FISH OIL CAP [Concomitant]
  11. SILDENAFIL 20MG [Suspect]
     Active Substance: SILDENAFIL
     Indication: CARDIAC DISORDER
     Route: 048
     Dates: start: 20180106
  12. COQ10 CAP [Concomitant]
  13. BUMENTANE [Concomitant]
  14. METOLAZONE TAB [Concomitant]
  15. WARFIN [Suspect]
     Active Substance: WARFARIN
  16. FEXOFEN [Concomitant]
  17. ZYRTEC ALLGY [Concomitant]
  18. POT CHLORIDE [Concomitant]
     Active Substance: POTASSIUM CHLORIDE
  19. GLIMEPIRIDE. [Concomitant]
     Active Substance: GLIMEPIRIDE
  20. COLCHICINE CAP [Concomitant]
  21. ALLOPURINOL. [Concomitant]
     Active Substance: ALLOPURINOL
  22. PLAVIX [Concomitant]
     Active Substance: CLOPIDOGREL BISULFATE
  23. LEVOTHYROXINE. [Concomitant]
     Active Substance: LEVOTHYROXINE

REACTIONS (1)
  - Pulmonary valve replacement [None]

NARRATIVE: CASE EVENT DATE: 20200118
